FAERS Safety Report 8996607 (Version 2)
Quarter: 2013Q1

REPORT INFORMATION
  Report Type: Spontaneous
  Country: FR (occurrence: FR)
  Receive Date: 20130104
  Receipt Date: 20130114
  Transmission Date: 20140127
  Serious: Yes (Hospitalization)
  Sender: FDA-Public Use
  Company Number: FR-JNJFOC-20121212765

PATIENT
  Age: 28 Year
  Sex: Female

DRUGS (7)
  1. REMICADE [Suspect]
     Indication: CROHN^S DISEASE
     Route: 042
     Dates: start: 20120914
  2. REMICADE [Suspect]
     Indication: CROHN^S DISEASE
     Dosage: AT 4H45
     Route: 042
     Dates: start: 20120720
  3. REMICADE [Suspect]
     Indication: CROHN^S DISEASE
     Dosage: SECOND COURSE OF INDUCTION OF TOLERANCE
     Route: 042
     Dates: start: 20120831
  4. REMICADE [Suspect]
     Indication: CROHN^S DISEASE
     Dosage: 250 MG BY COURSE
     Route: 042
     Dates: start: 20111221
  5. REMICADE [Suspect]
     Indication: CROHN^S DISEASE
     Dosage: 5TH INFUSION
     Route: 042
     Dates: start: 20120523
  6. REMICADE [Suspect]
     Indication: CROHN^S DISEASE
     Dosage: 6TH INFUSION
     Route: 042
     Dates: start: 20120704
  7. REMICADE [Suspect]
     Indication: CROHN^S DISEASE
     Route: 042
     Dates: start: 20120710

REACTIONS (5)
  - Infusion related reaction [Recovered/Resolved]
  - Chest discomfort [Recovered/Resolved]
  - Urticaria [Recovered/Resolved]
  - Malaise [Recovered/Resolved]
  - Feeling hot [Recovered/Resolved]
